FAERS Safety Report 4887337-7 (Version None)
Quarter: 2005Q4

REPORT INFORMATION
  Report Type: 
  Country: None (occurrence: None)
  Receive Date: 20051221
  Receipt Date: 20051003
  Transmission Date: 20060501
  Serious: No
  Sender: FDA-Public Use
  Company Number: US-YAMANOUCHI-YPA20050472

PATIENT
  Age: 69 Year
  Sex: Female
  Weight: 72.5755 kg

DRUGS (11)
  1. VESICARE [Suspect]
     Indication: POLLAKIURIA
     Dosage: 5 MG QD PO
     Route: 048
     Dates: start: 20050906, end: 20050101
  2. VESICARE [Suspect]
     Indication: POLLAKIURIA
     Dosage: 5 MG PO
     Route: 048
     Dates: start: 20050101
  3. CARBIDOPA LEVIDOPA [Concomitant]
  4. SYNTHROID [Concomitant]
  5. VERAPAMIL [Concomitant]
  6. METOPROLOL [Concomitant]
  7. TRICOR [Concomitant]
  8. ALEVE [Concomitant]
  9. TYLENOL (CAPLET) [Concomitant]
  10. TIMOLOL MALEATE [Concomitant]
  11. CIPRO [Concomitant]

REACTIONS (2)
  - CONSTIPATION [None]
  - SOMNOLENCE [None]
